FAERS Safety Report 15021974 (Version 1)
Quarter: 2018Q2

REPORT INFORMATION
  Report Type: Spontaneous
  Country: FR (occurrence: FR)
  Receive Date: 20180618
  Receipt Date: 20180618
  Transmission Date: 20180711
  Serious: Yes (Hospitalization, Other)
  Sender: FDA-Public Use
  Company Number: FR-JNJFOC-20180615203

PATIENT
  Age: 84 Year
  Sex: Female

DRUGS (2)
  1. NUROFEN RHUME [Suspect]
     Active Substance: IBUPROFEN\PSEUDOEPHEDRINE HYDROCHLORIDE
     Indication: PRODUCT USED FOR UNKNOWN INDICATION
     Route: 048
  2. XARELTO [Suspect]
     Active Substance: RIVAROXABAN
     Indication: PRODUCT USED FOR UNKNOWN INDICATION
     Route: 048

REACTIONS (8)
  - Normochromic normocytic anaemia [Recovered/Resolved]
  - Asthenia [Unknown]
  - Dyspnoea [Unknown]
  - Pupils unequal [Unknown]
  - Holmes-Adie pupil [Unknown]
  - Decreased appetite [Unknown]
  - Disorientation [Unknown]
  - Mydriasis [Unknown]

NARRATIVE: CASE EVENT DATE: 20150223
